FAERS Safety Report 8320101-5 (Version None)
Quarter: 2012Q2

REPORT INFORMATION
  Report Type: 
  Country: None (occurrence: None)
  Receive Date: 20120429
  Receipt Date: 20120417
  Transmission Date: 20120825
  Serious: Yes (Hospitalization)
  Sender: FDA-Public Use
  Company Number: IL-ELI_LILLY_AND_COMPANY-IL201203007353

PATIENT
  Sex: Female
  Weight: 96 kg

DRUGS (11)
  1. MICROPIRIN [Concomitant]
  2. PRAVALIP [Concomitant]
     Indication: HYPERCHOLESTEROLAEMIA
  3. FORTEO [Suspect]
     Indication: OSTEOPOROSIS
     Dosage: 20 UG, BID
     Route: 058
     Dates: start: 20120314
  4. FOLEX [Concomitant]
  5. NORMALOL [Concomitant]
     Indication: HYPERTENSION
  6. VITAMIN D [Concomitant]
  7. CALCIUM [Concomitant]
  8. FAMOTIDINE [Concomitant]
  9. TRIVITAMIN [Concomitant]
  10. CHONDROITIN SODIUM SULFATE W/GLUCOSAMINE HCL [Concomitant]
  11. CLONEX [Concomitant]

REACTIONS (4)
  - BACK PAIN [None]
  - MYALGIA [None]
  - OVERDOSE [None]
  - HIP ARTHROPLASTY [None]
